FAERS Safety Report 18761261 (Version 4)
Quarter: 2021Q1

REPORT INFORMATION
  Report Type: Spontaneous
  Country: GB (occurrence: GB)
  Receive Date: 20210120
  Receipt Date: 20210320
  Transmission Date: 20210419
  Serious: Yes (Other)
  Sender: FDA-Public Use
  Company Number: GB-ACCORD-214884

PATIENT
  Sex: Female

DRUGS (6)
  1. DOXAZOSIN [Suspect]
     Active Substance: DOXAZOSIN MESYLATE
     Indication: PRODUCT USED FOR UNKNOWN INDICATION
     Dosage: 10 UG (PATIENT HAD TAKE 10MCG OF THOSE A DAY)
     Route: 065
  2. ERGOCALCIFEROL. [Suspect]
     Active Substance: ERGOCALCIFEROL
     Indication: PRODUCT USED FOR UNKNOWN INDICATION
     Dosage: UNK
     Route: 065
  3. LIDOCAINE. [Suspect]
     Active Substance: LIDOCAINE
     Indication: PRODUCT USED FOR UNKNOWN INDICATION
     Dosage: PATCHES 12 HOURS AT NIGHT
     Route: 065
  4. COLECALCIFEROL [Suspect]
     Active Substance: CHOLECALCIFEROL
     Indication: PRODUCT USED FOR UNKNOWN INDICATION
     Dosage: 800 UNITS CAPSULES
     Route: 065
  5. LEVOTHYROXINE. [Suspect]
     Active Substance: LEVOTHYROXINE
     Indication: PRODUCT USED FOR UNKNOWN INDICATION
     Route: 065
  6. RAMIPRIL. [Suspect]
     Active Substance: RAMIPRIL
     Indication: OSTEOPOROSIS
     Route: 065

REACTIONS (11)
  - Eye infarction [Unknown]
  - Diplopia [Unknown]
  - Spinal fracture [Unknown]
  - Deafness [Unknown]
  - Off label use [Unknown]
  - Root canal infection [Unknown]
  - Pulmonary fibrosis [Unknown]
  - Medication error [Unknown]
  - Pain [Unknown]
  - Swelling face [Unknown]
  - Muscular weakness [Unknown]

NARRATIVE: CASE EVENT DATE: 201906
